FAERS Safety Report 11619867 (Version 1)
Quarter: 2015Q4

REPORT INFORMATION
  Report Type: Spontaneous
  Country: US (occurrence: US)
  Receive Date: 20151012
  Receipt Date: 20151012
  Transmission Date: 20160304
  Serious: No
  Sender: FDA-Public Use
  Company Number: US-PFIZER INC-2015327054

PATIENT
  Age: 67 Year
  Sex: Female

DRUGS (1)
  1. IBRANCE [Suspect]
     Active Substance: PALBOCICLIB
     Indication: BREAST CANCER
     Dosage: 300 MG, 1X/DAY (21 DAYS EVERY 28 DAYS)
     Route: 048
     Dates: start: 201507, end: 201509

REACTIONS (2)
  - Disease progression [Unknown]
  - Breast cancer [Unknown]

NARRATIVE: CASE EVENT DATE: 2015
